FAERS Safety Report 5557708-4 (Version None)
Quarter: 2007Q4

REPORT INFORMATION
  Report Type: 
  Country: None (occurrence: None)
  Receive Date: 20071214
  Receipt Date: 20071206
  Transmission Date: 20080405
  Serious: Yes (Life-Threatening, Hospitalization, Other)
  Sender: FDA-Public Use
  Company Number: PHBS2007BR19189

PATIENT
  Sex: Male

DRUGS (1)
  1. TEGRETOL [Suspect]
     Dosage: 2 TABS/D
     Route: 048
     Dates: start: 20010101

REACTIONS (5)
  - CONVULSION [None]
  - GASTRIC LAVAGE [None]
  - INCORRECT DOSE ADMINISTERED [None]
  - PNEUMONIA [None]
  - SUICIDE ATTEMPT [None]
